FAERS Safety Report 10534922 (Version 1)
Quarter: 2014Q4

REPORT INFORMATION
  Report Type: Spontaneous
  Country: US (occurrence: US)
  Receive Date: 20141022
  Receipt Date: 20141022
  Transmission Date: 20150529
  Serious: No
  Sender: FDA-Public Use
  Company Number: US-ASTRAZENECA-2013SE79530

PATIENT
  Sex: Female

DRUGS (3)
  1. 7 OTHER MEDICATIONS [Concomitant]
  2. CRESTOR [Suspect]
     Active Substance: ROSUVASTATIN CALCIUM
     Route: 048
  3. INSULIN [Concomitant]
     Active Substance: INSULIN NOS

REACTIONS (5)
  - Blood pressure abnormal [Unknown]
  - Diabetes mellitus [Unknown]
  - Dyspepsia [Unknown]
  - Arthritis [Unknown]
  - Thyroid disorder [Unknown]
